FAERS Safety Report 7260169-0 (Version None)
Quarter: 2011Q1

REPORT INFORMATION
  Report Type: 
  Country: None (occurrence: None)
  Receive Date: 20110130
  Receipt Date: 20101007
  Transmission Date: 20110831
  Serious: No
  Sender: FDA-Public Use
  Company Number: US-ABBOTT-10P-163-0676872-00

PATIENT
  Sex: Female
  Weight: 84.444 kg

DRUGS (8)
  1. FOLIC ACID [Concomitant]
     Indication: PRODUCT USED FOR UNKNOWN INDICATION
  2. METHOTREXATE [Concomitant]
     Indication: PRODUCT USED FOR UNKNOWN INDICATION
     Dosage: 8 TAB WEEKLY
  3. HUMIRA [Suspect]
     Dates: start: 20101001
  4. UNKNOWN HYPERTENSION MEDICATION [Concomitant]
     Indication: HYPERTENSION
  5. UNKNOWN DEPRESSION MEDICATION [Concomitant]
     Indication: DEPRESSION
  6. HUMIRA [Suspect]
     Indication: ANKYLOSING SPONDYLITIS
     Dates: start: 20100601, end: 20100801
  7. UNKNOWN MUSCLE RELAXER [Concomitant]
     Indication: PRODUCT USED FOR UNKNOWN INDICATION
  8. LORTAB [Concomitant]
     Indication: PAIN
     Dosage: 1 TAB EVERY 5 HOURS AS REQUIRED

REACTIONS (7)
  - FRUSTRATION [None]
  - INJECTION SITE PAIN [None]
  - DEPRESSION [None]
  - WEIGHT INCREASED [None]
  - DEPRESSED MOOD [None]
  - DEVICE MALFUNCTION [None]
  - PAIN [None]
